FAERS Safety Report 7934552-1 (Version None)
Quarter: 2011Q4

REPORT INFORMATION
  Report Type: 
  Country: None (occurrence: None)
  Receive Date: 20111122
  Receipt Date: 20111117
  Transmission Date: 20120403
  Serious: Yes (Other)
  Sender: FDA-Public Use
  Company Number: CA-JNJFOC-20111109230

PATIENT
  Age: 34 Year
  Sex: Male

DRUGS (1)
  1. NICOTINE [Suspect]
     Indication: SMOKING CESSATION THERAPY
     Dosage: FOR OVER TWO YEARS
     Route: 048

REACTIONS (2)
  - INTENTIONAL DRUG MISUSE [None]
  - DEPENDENCE [None]
